FAERS Safety Report 12253894 (Version 3)
Quarter: 2016Q2

REPORT INFORMATION
  Report Type: Spontaneous
  Country: DZ (occurrence: DZ)
  Receive Date: 20160411
  Receipt Date: 20160606
  Transmission Date: 20160815
  Serious: Yes (Other)
  Sender: FDA-Public Use
  Company Number: DZ-PFIZER INC-2016154177

PATIENT
  Age: 42 Year
  Sex: Female

DRUGS (14)
  1. LOXEN /00639802/ [Concomitant]
     Active Substance: NICARDIPINE
     Indication: HYPERTENSION
     Dosage: 1CC DILUTED IN 3CC SSI
  2. IMODIUM [Concomitant]
     Active Substance: LOPERAMIDE HYDROCHLORIDE
  3. SUTENT [Suspect]
     Active Substance: SUNITINIB MALATE
     Indication: NEUROENDOCRINE CARCINOMA METASTATIC
     Dosage: 50MG, CYCLIC DAILY FOR 4 WEEKS ON AND 2 WEEKS OFF
     Dates: start: 20131020
  4. SOMATULINE DEPOT [Concomitant]
     Active Substance: LANREOTIDE ACETATE
     Dosage: 120 MG, UNK ( 28 DAYS)
  5. SOMATULINE DEPOT [Concomitant]
     Active Substance: LANREOTIDE ACETATE
     Indication: NEUROENDOCRINE CARCINOMA METASTATIC
     Dosage: 20 MG, UNK
  6. ZANIDIP [Concomitant]
     Active Substance: LERCANIDIPINE HYDROCHLORIDE
     Indication: NEUROENDOCRINE CARCINOMA
     Dosage: 50MG CYCLIC, 4 WEEKS ON/2 WEEKS OFF
     Dates: start: 20131020
  7. DETENSIEL /00802601/ [Concomitant]
     Active Substance: BISOPROLOL FUMARATE
  8. SUTENT [Suspect]
     Active Substance: SUNITINIB MALATE
     Dosage: 37.5 MG DAILY CYCLIC
     Dates: start: 20140929
  9. LEVOTHYROX [Concomitant]
     Active Substance: LEVOTHYROXINE
     Dosage: 100 UG, UNK
  10. BIAFINE /00161601/ [Concomitant]
  11. FUNGIZONE [Concomitant]
     Active Substance: AMPHOTERICIN B
  12. COAPROVEL [Concomitant]
     Active Substance: HYDROCHLOROTHIAZIDE\IRBESARTAN
  13. LEVOTHYROX [Concomitant]
     Active Substance: LEVOTHYROXINE
     Dosage: 75 UG, UNK
  14. SOLUPRED /00016201/ [Concomitant]
     Active Substance: PREDNISOLONE
     Dosage: 20 MG, IN THE MORNING

REACTIONS (15)
  - Hypertension [Recovered/Resolved]
  - Blood thyroid stimulating hormone increased [Recovered/Resolved]
  - Lip oedema [Unknown]
  - Diarrhoea [Not Recovered/Not Resolved]
  - Asthenia [Recovered/Resolved]
  - Haemorrhoids [Not Recovered/Not Resolved]
  - Vomiting [Unknown]
  - Carcinoid syndrome [Unknown]
  - Mucosal inflammation [Unknown]
  - Eyelid oedema [Unknown]
  - Yellow skin [Not Recovered/Not Resolved]
  - Flatulence [Recovered/Resolved]
  - Electrocardiogram high voltage [Unknown]
  - Palmar-plantar erythrodysaesthesia syndrome [Unknown]
  - Palpitations [Unknown]
